FAERS Safety Report 5787990-X (Version None)
Quarter: 2008Q2

REPORT INFORMATION
  Report Type: 
  Country: None (occurrence: None)
  Receive Date: 20080623
  Receipt Date: 20080613
  Transmission Date: 20081010
  Serious: Yes (Hospitalization)
  Sender: FDA-Public Use
  Company Number: 163-21880-08040072

PATIENT
  Age: 80 Year
  Sex: Male
  Weight: 65 kg

DRUGS (14)
  1. REVLIMID [Suspect]
     Indication: MANTLE CELL LYMPHOMA
     Dosage: 10 MG, QD, ORAL
     Route: 048
     Dates: start: 20080307, end: 20080326
  2. RITUXAN [Suspect]
     Indication: MANTLE CELL LYMPHOMA
     Dosage: 700 MG, Q WK, INTRAVENOUS
     Route: 042
     Dates: start: 20080324, end: 20080324
  3. ALLOPURINOL [Concomitant]
  4. AZELASTINE (AZELASTINE) [Concomitant]
  5. ZYRTEC [Concomitant]
  6. DOCUSATE (DOCUSATE) [Concomitant]
  7. PROSCAR [Concomitant]
  8. FLUCONAZOLE [Concomitant]
  9. NYSTATIN [Concomitant]
  10. ZANTAC [Concomitant]
  11. ALDACTONE [Concomitant]
  12. TORSEMIDE [Concomitant]
  13. LEVAQUIN [Concomitant]
  14. FLAGYL [Concomitant]

REACTIONS (18)
  - AORTIC ARTERIOSCLEROSIS [None]
  - ASCITES [None]
  - ATELECTASIS [None]
  - BLOOD CHLORIDE DECREASED [None]
  - BLOOD SODIUM DECREASED [None]
  - CAECITIS [None]
  - CHOLELITHIASIS [None]
  - DEHYDRATION [None]
  - ILEUS [None]
  - INTESTINAL OBSTRUCTION [None]
  - MASS [None]
  - NECROSIS [None]
  - NEUTROPENIA [None]
  - PERITONEAL DISORDER [None]
  - PLEURAL EFFUSION [None]
  - PNEUMATOSIS [None]
  - RENAL FAILURE ACUTE [None]
  - SPLEEN DISORDER [None]
